FAERS Safety Report 4334126-8 (Version None)
Quarter: 2004Q2

REPORT INFORMATION
  Report Type: 
  Country: None (occurrence: None)
  Receive Date: 20040405
  Receipt Date: 20040325
  Transmission Date: 20050107
  Serious: Yes (Life-Threatening, Hospitalization)
  Sender: FDA-Public Use
  Company Number: TAP2003Q00388

PATIENT
  Age: 22 Year
  Sex: Female

DRUGS (2)
  1. LUPRON [Suspect]
     Indication: OOCYTE DONATION
     Dosage: 1 IN 1 D, INJECTION
  2. ORAL CONTRACEPTIVES (ORAL CONTRACEPTIVE NOS) [Concomitant]

REACTIONS (21)
  - AMNESIA [None]
  - BLOOD LUTEINISING HORMONE DECREASED [None]
  - BLOOD SODIUM DECREASED [None]
  - CEREBRAL INFARCTION [None]
  - CEREBROVASCULAR SPASM [None]
  - COGNITIVE DISORDER [None]
  - COMA [None]
  - DIABETES INSIPIDUS [None]
  - HEADACHE [None]
  - HEMIPARESIS [None]
  - HEMIPLEGIA [None]
  - INTRACRANIAL TUMOUR HAEMORRHAGE [None]
  - LETHARGY [None]
  - MUSCULOSKELETAL STIFFNESS [None]
  - NECROSIS [None]
  - PHOTOPHOBIA [None]
  - PITUITARY TUMOUR BENIGN [None]
  - PUPIL FIXED [None]
  - PYREXIA [None]
  - VISUAL PATHWAY DISORDER [None]
  - VOMITING [None]
